FAERS Safety Report 12712785 (Version 2)
Quarter: 2016Q3

REPORT INFORMATION
  Report Type: Spontaneous
  Country: US (occurrence: US)
  Receive Date: 20160902
  Receipt Date: 20160928
  Transmission Date: 20161109
  Serious: Yes (Hospitalization, Other)
  Sender: FDA-Public Use
  Company Number: US-SAOL THERAPEUTICS-2016SAO00564

PATIENT
  Age: 37 Year
  Sex: Male
  Weight: 77.98 kg

DRUGS (11)
  1. LEXAPRO [Concomitant]
     Active Substance: ESCITALOPRAM OXALATE
  2. FEXOFENADINE [Concomitant]
     Active Substance: FEXOFENADINE\FEXOFENADINE HYDROCHLORIDE
  3. 3 INDECIPHERABLE PRODUCTS [Concomitant]
  4. COMPOUNDED BACLOFEN [Suspect]
     Active Substance: BACLOFEN
     Indication: MUSCLE SPASTICITY
  5. DEPAKOTE [Concomitant]
     Active Substance: DIVALPROEX SODIUM
  6. COMPOUNDED BACLOFEN [Suspect]
     Active Substance: BACLOFEN
     Indication: MUSCLE SPASTICITY
     Dosage: 681.3 ?G, \DAY
     Route: 037
  7. COMPOUNDED BACLOFEN [Suspect]
     Active Substance: BACLOFEN
     Indication: HEAD INJURY
  8. KEPPRA XR [Concomitant]
     Active Substance: LEVETIRACETAM
  9. SEROQUEL [Concomitant]
     Active Substance: QUETIAPINE FUMARATE
  10. LORATADINE. [Concomitant]
     Active Substance: LORATADINE
  11. COMPOUNDED BACLOFEN [Suspect]
     Active Substance: BACLOFEN
     Indication: HEAD INJURY

REACTIONS (8)
  - Drug withdrawal syndrome [Unknown]
  - Mass [Unknown]
  - Device kink [Unknown]
  - Pain [Unknown]
  - Intra-abdominal fluid collection [Unknown]
  - Device occlusion [Unknown]
  - Drug dose omission [Unknown]
  - Intra-abdominal haemorrhage [Unknown]

NARRATIVE: CASE EVENT DATE: 201605
